FAERS Safety Report 12460748 (Version 5)
Quarter: 2016Q4

REPORT INFORMATION
  Report Type: Spontaneous
  Country: GB (occurrence: GB)
  Receive Date: 20160613
  Receipt Date: 20161215
  Transmission Date: 20170207
  Serious: Yes (Life-Threatening)
  Sender: FDA-Public Use
  Company Number: GB-PFIZER INC-2016290756

PATIENT
  Age: 48 Year
  Weight: 118 kg

DRUGS (5)
  1. ADALIMUMAB [Suspect]
     Active Substance: ADALIMUMAB
     Indication: PSORIATIC ARTHROPATHY
  2. RAMIPRIL. [Concomitant]
     Active Substance: RAMIPRIL
     Dosage: UNK
     Route: 065
  3. ADALIMUMAB [Suspect]
     Active Substance: ADALIMUMAB
     Indication: PSORIASIS
     Dosage: 40 MG, 1 IN 2 W (2.8571 MG)
     Route: 058
     Dates: start: 2011, end: 20160520
  4. METHOTREXATE SODIUM. [Suspect]
     Active Substance: METHOTREXATE SODIUM
     Indication: PSORIATIC ARTHROPATHY
  5. METHOTREXATE SODIUM. [Suspect]
     Active Substance: METHOTREXATE SODIUM
     Indication: PSORIASIS
     Dosage: 7.5 MG, UNK
     Route: 048
     Dates: start: 20150202, end: 20160520

REACTIONS (3)
  - Soft tissue mass [Not Recovered/Not Resolved]
  - Nasopharyngeal cancer [Not Recovered/Not Resolved]
  - VIth nerve paralysis [Unknown]

NARRATIVE: CASE EVENT DATE: 20160518
